FAERS Safety Report 9507111 (Version 1)
Quarter: 2013Q3

REPORT INFORMATION
  Report Type: Spontaneous
  Country: IT (occurrence: IT)
  Receive Date: 20130909
  Receipt Date: 20130909
  Transmission Date: 20140515
  Serious: Yes (Hospitalization)
  Sender: FDA-Public Use
  Company Number: IT-SANOFI-AVENTIS-2013SA087854

PATIENT
  Age: 48 Year
  Sex: Male

DRUGS (4)
  1. SOLOSA [Suspect]
     Indication: DIABETES MELLITUS
     Route: 048
     Dates: start: 20130610, end: 20130621
  2. JANUMET [Suspect]
     Indication: DIABETES MELLITUS
     Dosage: STRENGTH SITAGLIPTIN/ METFORMIN ( JANUMET ) 50MG/ 1000 MG
     Route: 048
     Dates: start: 20130610, end: 20130621
  3. QUARK [Concomitant]
     Indication: ESSENTIAL HYPERTENSION
     Route: 048
  4. PROVISACOR [Concomitant]
     Indication: HYPERCHOLESTEROLAEMIA

REACTIONS (3)
  - Pancreatitis acute [Recovered/Resolved]
  - Lipase increased [Recovered/Resolved]
  - Amylase increased [Recovered/Resolved]
